FAERS Safety Report 6957037-8 (Version None)
Quarter: 2010Q3

REPORT INFORMATION
  Report Type: 
  Country: None (occurrence: None)
  Receive Date: 20100827
  Receipt Date: 20100827
  Transmission Date: 20110219
  Serious: Yes (Other)
  Sender: FDA-Public Use
  Company Number: None

PATIENT
  Sex: Male
  Weight: 111.1313 kg

DRUGS (2)
  1. ALPRAZOLAM [Suspect]
     Indication: ANXIETY
     Dosage: XANAX (GENERIC) 1 MG TID PO
     Route: 048
     Dates: start: 20020301
  2. ZOLOFT [Suspect]
     Indication: ANXIETY
     Dosage: ZOLOFT (GENERIC) 25, 50, 100 MG PO
     Route: 048
     Dates: start: 20040501

REACTIONS (10)
  - ANXIETY [None]
  - FEELING ABNORMAL [None]
  - NAUSEA [None]
  - PRODUCT SUBSTITUTION ISSUE [None]
  - PYREXIA [None]
  - REACTION TO DRUG EXCIPIENTS [None]
  - SUICIDAL IDEATION [None]
  - TACHYPHRENIA [None]
  - TINNITUS [None]
  - VOMITING [None]
